FAERS Safety Report 7022117-8 (Version None)
Quarter: 2010Q3

REPORT INFORMATION
  Report Type: 
  Country: None (occurrence: None)
  Receive Date: 20100930
  Receipt Date: 20100927
  Transmission Date: 20110219
  Serious: Yes (Hospitalization)
  Sender: FDA-Public Use
  Company Number: FR-SANOFI-AVENTIS-2010SA057748

PATIENT
  Age: 62 Year
  Sex: Male

DRUGS (14)
  1. RIFADIN [Suspect]
     Indication: OSTEITIS
     Route: 042
     Dates: start: 20100827, end: 20100830
  2. LOVENOX [Suspect]
     Indication: THROMBOSIS PROPHYLAXIS
     Route: 058
     Dates: start: 20100829, end: 20100830
  3. VANCOMYCIN HCL [Suspect]
     Indication: OSTEITIS
     Route: 042
     Dates: start: 20100817, end: 20100831
  4. ALLOPURINOL [Concomitant]
     Indication: PRODUCT USED FOR UNKNOWN INDICATION
     Route: 065
  5. AVANDIA [Concomitant]
     Indication: PRODUCT USED FOR UNKNOWN INDICATION
     Route: 065
  6. AMLODIPINE [Concomitant]
     Indication: PRODUCT USED FOR UNKNOWN INDICATION
     Route: 065
  7. TRAMADOL HCL [Concomitant]
     Indication: PRODUCT USED FOR UNKNOWN INDICATION
     Route: 065
  8. ACETAMINOPHEN [Concomitant]
     Indication: PRODUCT USED FOR UNKNOWN INDICATION
     Route: 065
  9. ESIDRIX [Concomitant]
     Indication: PRODUCT USED FOR UNKNOWN INDICATION
     Route: 065
  10. ESOMEPRAZOLE [Concomitant]
     Indication: PRODUCT USED FOR UNKNOWN INDICATION
     Route: 065
  11. LYRICA [Concomitant]
     Indication: PRODUCT USED FOR UNKNOWN INDICATION
     Route: 065
  12. TAREG [Concomitant]
     Indication: PRODUCT USED FOR UNKNOWN INDICATION
     Route: 065
  13. DALACIN [Concomitant]
     Indication: OSTEITIS
     Dates: start: 20100813, end: 20100817
  14. OFLOCET [Concomitant]
     Indication: OSTEITIS
     Dates: start: 20100813, end: 20100817

REACTIONS (2)
  - LINEAR IGA DISEASE [None]
  - THROMBOCYTOPENIA [None]
